FAERS Safety Report 6310449-8 (Version None)
Quarter: 2009Q3

REPORT INFORMATION
  Report Type: 
  Country: None (occurrence: None)
  Receive Date: 20090814
  Receipt Date: 20090807
  Transmission Date: 20100115
  Serious: Yes (Other)
  Sender: FDA-Public Use
  Company Number: ES-PFIZER INC-2009249768

PATIENT
  Age: 82 Year

DRUGS (5)
  1. ARTILOG [Suspect]
     Indication: ARTHRITIS
     Dosage: 200 MG, 1X/DAY
     Route: 048
     Dates: start: 20080401
  2. CARDYL [Suspect]
     Dosage: 40 MG, 1X/DAY
     Route: 048
     Dates: start: 20080201
  3. PANTECTA [Suspect]
     Dosage: 40 MG, 1X/DAY
     Route: 048
     Dates: start: 20080401
  4. RISEDRONATE SODIUM [Suspect]
     Indication: BACK PAIN
     Dosage: 35 MG, WEEKLY
     Route: 048
     Dates: start: 20080401
  5. COZAAR [Suspect]
     Indication: HYPERTENSION
     Dosage: 1 DF, 1X/DAY
     Route: 048
     Dates: start: 20080101

REACTIONS (2)
  - CEREBRAL INFARCTION [None]
  - TRANSIENT ISCHAEMIC ATTACK [None]
